FAERS Safety Report 4962343-2 (Version None)
Quarter: 2006Q2

REPORT INFORMATION
  Report Type: 
  Country: None (occurrence: None)
  Receive Date: 20060403
  Receipt Date: 20060403
  Transmission Date: 20061013
  Serious: Yes (Life-Threatening)
  Sender: FDA-Public Use
  Company Number: None

PATIENT
  Sex: Male
  Weight: 92.3524 kg

DRUGS (7)
  1. KETOCONAZOLE [Suspect]
     Indication: PROSTATE CANCER
     Dosage: 400MG  TID PO
     Route: 048
     Dates: start: 20060228
  2. HYDROCORTISONE [Suspect]
     Indication: PROSTATE CANCER
     Dosage: 20MG QAM, 10MG QPM  PO
     Route: 048
     Dates: start: 20060228
  3. LUPRON [Concomitant]
  4. ATENOLOL [Concomitant]
  5. LISINOPRIL [Concomitant]
  6. ASPIRIN [Concomitant]
  7. HYDROCHLOROTHIAZIDE [Concomitant]

REACTIONS (4)
  - ABNORMAL SENSATION IN EYE [None]
  - FATIGUE [None]
  - HYPERTENSION [None]
  - PALPITATIONS [None]
